FAERS Safety Report 6532025-4 (Version None)
Quarter: 2010Q1

REPORT INFORMATION
  Report Type: 
  Country: None (occurrence: None)
  Receive Date: 20100108
  Receipt Date: 20100105
  Transmission Date: 20100710
  Serious: Yes (Hospitalization)
  Sender: FDA-Public Use
  Company Number: US-MERCK-0911USA03613

PATIENT
  Age: 43 Year
  Sex: Female

DRUGS (9)
  1. SINGULAIR [Suspect]
     Indication: ASTHMA
     Route: 048
  2. ADVAIR DISKUS 100/50 [Concomitant]
     Route: 065
  3. LYRICA [Concomitant]
     Route: 065
  4. MORPHINE [Concomitant]
     Route: 065
  5. XANAX [Concomitant]
     Route: 065
  6. FLEXERIL [Concomitant]
     Route: 065
  7. SINGULAIR [Suspect]
     Route: 048
  8. SINGULAIR [Suspect]
     Route: 048
  9. MIRALAX [Concomitant]
     Route: 065

REACTIONS (3)
  - DRUG INEFFECTIVE [None]
  - DYSPNOEA [None]
  - WHEEZING [None]
